FAERS Safety Report 8821311 (Version 1)
Quarter: 2012Q4

REPORT INFORMATION
  Report Type: 
  Country: DE (occurrence: GB)
  Receive Date: 20121002
  Receipt Date: 20121002
  Transmission Date: 20130627
  Serious: Yes (Other)
  Sender: FDA-Public Use
  Company Number: GB-FRI-1000036667

PATIENT
  Sex: Female

DRUGS (1)
  1. MEMANTINE [Suspect]
     Dosage: 10 mg
     Route: 048
     Dates: start: 201204

REACTIONS (2)
  - Lymphadenopathy [Unknown]
  - T-cell lymphoma [Unknown]
